FAERS Safety Report 7144924-3 (Version None)
Quarter: 2010Q4

REPORT INFORMATION
  Report Type: 
  Country: None (occurrence: None)
  Receive Date: 20101123
  Receipt Date: 20101018
  Transmission Date: 20110411
  Serious: No
  Sender: FDA-Public Use
  Company Number: 020574

PATIENT
  Sex: Female
  Weight: 112 kg

DRUGS (11)
  1. CIMZIA [Suspect]
     Indication: CROHN'S DISEASE
     Dosage: TWO SHOTS SUBCUTANEOUS
     Route: 058
     Dates: start: 20100501
  2. IMODIUM [Suspect]
     Indication: CROHN'S DISEASE
     Dosage: SEVERAL PILLS (MG) ORAL
     Route: 048
  3. IMODIUM [Suspect]
     Indication: DIARRHOEA
     Dosage: SEVERAL PILLS (MG) ORAL
     Route: 048
  4. BYETTA [Concomitant]
  5. LANTUS [Concomitant]
  6. METFORMIN HCL [Concomitant]
  7. GABAPENTIN [Concomitant]
  8. PROTONIX [Concomitant]
  9. VITAMIN A [Concomitant]
  10. CALCIUM [Concomitant]
  11. PROZAC /00724401/ [Concomitant]

REACTIONS (6)
  - DRY MOUTH [None]
  - GINGIVAL BLEEDING [None]
  - GINGIVITIS [None]
  - GLOSSODYNIA [None]
  - TONGUE DISORDER [None]
  - VISION BLURRED [None]
